FAERS Safety Report 6232316-0 (Version None)
Quarter: 2009Q2

REPORT INFORMATION
  Report Type: 
  Country: None (occurrence: None)
  Receive Date: 20090616
  Receipt Date: 20090616
  Transmission Date: 20091009
  Serious: Yes (Other)
  Sender: FDA-Public Use
  Company Number: None

PATIENT
  Age: 33 Year
  Sex: Female
  Weight: 82.5547 kg

DRUGS (3)
  1. LAMOTRIGINE [Suspect]
     Indication: BIPOLAR I DISORDER
     Dosage: 3/19/09 25 MG QD X 2 WKS ORAL 4/7/09 50 MG QD ORAL 4/17/09 100 MG QD ORAL
     Route: 048
     Dates: start: 20090319, end: 20090417
  2. RITALIN [Concomitant]
  3. SERTRALINE [Concomitant]

REACTIONS (4)
  - ACNE [None]
  - RASH [None]
  - SKIN DISCOLOURATION [None]
  - SKIN ULCER [None]
